FAERS Safety Report 6619912-3 (Version None)
Quarter: 2010Q1

REPORT INFORMATION
  Report Type: 
  Country: None (occurrence: None)
  Receive Date: 20100309
  Receipt Date: 20100226
  Transmission Date: 20100710
  Serious: Yes (Other)
  Sender: FDA-Public Use
  Company Number: US-ALEXION-A201000232

PATIENT
  Sex: Female

DRUGS (3)
  1. SOLIRIS [Suspect]
     Indication: PAROXYSMAL NOCTURNAL HAEMOGLOBINURIA
     Dosage: UNK
     Route: 042
     Dates: start: 20070524
  2. SOLIRIS [Suspect]
     Dosage: 900 MG, Q2W
     Route: 042
  3. VIDAZA [Concomitant]
     Indication: MYELODYSPLASTIC SYNDROME
     Dosage: QD X 1W/MONTH X6 CYCLES
     Route: 042
     Dates: start: 20100108

REACTIONS (2)
  - MYELODYSPLASTIC SYNDROME [None]
  - RASH MACULAR [None]
